FAERS Safety Report 9583026 (Version 1)
Quarter: 2013Q4

REPORT INFORMATION
  Report Type: Spontaneous
  Country: US (occurrence: US)
  Receive Date: 20131002
  Receipt Date: 20131002
  Transmission Date: 20140711
  Serious: Yes (Other)
  Sender: FDA-Public Use
  Company Number: US-AMGEN-USASP2013044542

PATIENT
  Age: 36 Year
  Sex: Male

DRUGS (2)
  1. ENBREL [Suspect]
     Indication: PSORIATIC ARTHROPATHY
     Dosage: UNK
     Route: 065
     Dates: start: 20130315
  2. METHOTREXATE [Concomitant]
     Dosage: UNK

REACTIONS (3)
  - Tooth abscess [Recovered/Resolved]
  - Discomfort [Recovered/Resolved]
  - Tooth disorder [Recovered/Resolved]
